FAERS Safety Report 15549245 (Version 2)
Quarter: 2018Q4

REPORT INFORMATION
  Report Type: Report from Study
  Country: US (occurrence: US)
  Receive Date: 20181025
  Receipt Date: 20181104
  Transmission Date: 20190205
  Serious: No
  Sender: FDA-Public Use
  Company Number: US-BIOGEN-2018BI00650190

PATIENT
  Age: 71 Year
  Sex: Female

DRUGS (2)
  1. TECFIDERA [Suspect]
     Active Substance: DIMETHYL FUMARATE
     Indication: MULTIPLE SCLEROSIS
     Dosage: STARTING DOSE, FOR 7 DAYS
     Route: 048
     Dates: start: 20181015, end: 20181022
  2. TECFIDERA [Suspect]
     Active Substance: DIMETHYL FUMARATE
     Dosage: MAINTENANCE DOSE
     Route: 048
     Dates: start: 20181022

REACTIONS (9)
  - Abdominal distension [Unknown]
  - Asthenia [Unknown]
  - Body temperature decreased [Unknown]
  - Motor dysfunction [Unknown]
  - Product dose omission [Recovered/Resolved]
  - Paraesthesia [Unknown]
  - Flushing [Recovered/Resolved]
  - Abdominal pain [Unknown]
  - Incoherent [Unknown]

NARRATIVE: CASE EVENT DATE: 201810
